FAERS Safety Report 8333798-0 (Version None)
Quarter: 2012Q1

REPORT INFORMATION
  Report Type: 
  Country: None (occurrence: None)
  Receive Date: 20120328
  Receipt Date: 20100719
  Transmission Date: 20120608
  Serious: Yes (Disabling, Other)
  Sender: FDA-Public Use
  Company Number: PHHY2010US48468

PATIENT
  Age: 78 Year
  Sex: Female
  Weight: 73 kg

DRUGS (17)
  1. ASPIRIN [Concomitant]
  2. CALCIUM CARBONATE [Concomitant]
  3. DIOVAN [Concomitant]
  4. PREDNISONE TAB [Concomitant]
  5. SIMVASTATIN [Concomitant]
  6. LUCENTIS [Concomitant]
  7. REFRESH EYES [Concomitant]
  8. VITAMIN D [Concomitant]
  9. HYDROCHLOROTHIAZIDE [Concomitant]
  10. VALTURNA [Suspect]
     Indication: HYPERTENSION
     Dosage: 300/320 MG, ORAL
     Route: 048
     Dates: start: 20100722, end: 20100726
  11. AMITRIPTYLINE HCL [Concomitant]
  12. DICYCLOMINE [Concomitant]
  13. ATENOLOL [Concomitant]
  14. METRODIN (UROFOLLITROPIN) [Concomitant]
  15. MULTIVITAMINS (ASCORBIC ACID, ERGOCALCIFEROL, FOLIC ACID, NICOTINAMIDE [Concomitant]
  16. OCUVITE (ASCORBIC ACID, RETINOL, TOCOPHEROL) [Concomitant]
  17. FUROSEMIDE [Concomitant]

REACTIONS (1)
  - FATIGUE [None]
